FAERS Safety Report 25760768 (Version 1)
Quarter: 2025Q3

REPORT INFORMATION
  Report Type: Spontaneous
  Country: CN (occurrence: CN)
  Receive Date: 20250904
  Receipt Date: 20250904
  Transmission Date: 20251021
  Serious: Yes (Other)
  Sender: PFIZER
  Company Number: CN-PFIZER INC-PV202500105153

PATIENT
  Age: 17 Month
  Sex: Male
  Weight: 12 kg

DRUGS (4)
  1. CYTARABINE [Suspect]
     Active Substance: CYTARABINE
     Indication: Neoplasm malignant
     Dosage: 1.5 G, 2X/DAY
     Route: 041
     Dates: start: 20250807, end: 20250808
  2. CYTARABINE [Suspect]
     Active Substance: CYTARABINE
     Indication: Acute leukaemia
  3. PEGASPARGASE [Suspect]
     Active Substance: PEGASPARGASE
     Indication: Neoplasm malignant
     Dosage: 1060 IU, 1X/DAY
     Route: 030
     Dates: start: 20250809, end: 20250809
  4. PEGASPARGASE [Suspect]
     Active Substance: PEGASPARGASE
     Indication: Acute leukaemia

REACTIONS (3)
  - Platelet count decreased [Recovering/Resolving]
  - Myelosuppression [Recovering/Resolving]
  - Anal haemorrhage [Recovering/Resolving]

NARRATIVE: CASE EVENT DATE: 20250818
